FAERS Safety Report 8124748 (Version 2)
Quarter: 2014Q2

REPORT INFORMATION
  Report Type: Spontaneous
  Country: FR (occurrence: FR)
  Receive Date: 20110907
  Receipt Date: 20140530
  Transmission Date: 20141212
  Serious: Yes (Hospitalization, Other)
  Sender: FDA-Public Use
  Company Number: PHHY2011FR76281

PATIENT
  Age: 84 Year
  Sex: Male
  Weight: 90 kg

DRUGS (12)
  1. SINTROM [Suspect]
     Dosage: UNK UKN, UNK
     Dates: start: 201106, end: 20110803
  2. ALLOPURINOL [Suspect]
     Dosage: 100 MG, DAILY
     Route: 048
     Dates: start: 20110720, end: 20110730
  3. COUMADINE [Concomitant]
     Dosage: UNK UKN, UNK
  4. LASILIX [Concomitant]
     Dosage: UNK UKN, UNK
  5. HYDROCORTISONE [Concomitant]
     Dosage: 30 MG, DAILY
     Dates: start: 20110804
  6. KAYEXALATE [Concomitant]
     Dosage: UNK UKN, UNK
  7. BISOPROLOL HEMIFUMARATE [Concomitant]
     Dosage: UNK UKN, UNK
  8. FUNGIZONE [Concomitant]
     Dosage: UNK UKN, UNK
  9. LEVOTHYROX [Concomitant]
     Dosage: UNK UKN, UNK
  10. CLINDAMYCIN [Concomitant]
     Dosage: UNK UKN, UNK
  11. EPREX [Concomitant]
     Dosage: UNK UKN, QW3
     Dates: start: 201010, end: 20110510
  12. ARANESP [Concomitant]
     Dosage: UNK UKN, UNK
     Dates: start: 201105, end: 20110801

REACTIONS (9)
  - Renal failure [Recovering/Resolving]
  - Cardiac failure [Unknown]
  - Drug reaction with eosinophilia and systemic symptoms [Recovering/Resolving]
  - Hyponatraemia [Unknown]
  - Eosinophilia [Recovered/Resolved]
  - Pruritus [Recovering/Resolving]
  - Nausea [Unknown]
  - Vomiting [Unknown]
  - Asthenia [Unknown]
